APPROVED DRUG PRODUCT: RINVOQ LQ
Active Ingredient: UPADACITINIB
Strength: 1MG/ML
Dosage Form/Route: SOLUTION;ORAL
Application: N218347 | Product #001
Applicant: ABBVIE INC
Approved: Apr 26, 2024 | RLD: Yes | RS: Yes | Type: RX

PATENTS:
Patent 12365689 | Expires: Oct 17, 2036
Patent 8962629 | Expires: Jan 15, 2031
Patent 8962629 | Expires: Jan 15, 2031
Patent 9951080 | Expires: Oct 17, 2036
Patent 10981923 | Expires: Oct 17, 2036
Patent 11680069 | Expires: Oct 17, 2036
Patent 12110298 | Expires: Oct 17, 2036
Patent RE47221 | Expires: Aug 16, 2033
Patent 11718627 | Expires: Oct 17, 2036
Patent 11661425 | Expires: Oct 17, 2036
Patent 11773105 | Expires: Oct 17, 2036
Patent 11186584 | Expires: Oct 17, 2036

EXCLUSIVITY:
Code: NP | Date: Apr 26, 2027
Code: ODE-481 | Date: Apr 26, 2031